FAERS Safety Report 18908035 (Version 1)
Quarter: 2021Q1

REPORT INFORMATION
  Report Type: Other
  Country: GB (occurrence: GB)
  Receive Date: 20210218
  Receipt Date: 20210218
  Transmission Date: 20210420
  Serious: Yes (Other)
  Sender: FDA-Public Use
  Company Number: GB-CELLTRION INC.-2021GB001677

PATIENT

DRUGS (8)
  1. REMSIMA [Suspect]
     Active Substance: INFLIXIMAB
     Indication: RHEUMATOID ARTHRITIS
     Dosage: 120 MG, 2/WEEK
     Route: 058
  2. ESOMEPRAZOLE. [Concomitant]
     Active Substance: ESOMEPRAZOLE MAGNESIUM
  3. PREDNISOLONE. [Concomitant]
     Active Substance: PREDNISOLONE
  4. FOSTAIR [Concomitant]
     Active Substance: BECLOMETHASONE\FORMOTEROL
  5. TIBOLONE [Concomitant]
     Active Substance: TIBOLONE
  6. INFLECTRA [Concomitant]
     Active Substance: INFLIXIMAB-DYYB
     Dosage: DATE AND TIME OF LAST ADMINISTRATION: 2020
     Route: 042
  7. BETAHISTINE [Concomitant]
     Active Substance: BETAHISTINE
  8. PROPRANOLOL [Concomitant]
     Active Substance: PROPRANOLOL HYDROCHLORIDE

REACTIONS (4)
  - Off label use [Unknown]
  - Rheumatoid arthritis [Unknown]
  - Product substitution issue [Unknown]
  - Drug ineffective [Unknown]
